FAERS Safety Report 20443313 (Version 1)
Quarter: 2022Q1

REPORT INFORMATION
  Report Type: Spontaneous
  Country: US (occurrence: None)
  Receive Date: 20220207
  Receipt Date: 20220207
  Transmission Date: 20220424
  Serious: Yes (Disabling)
  Sender: FDA-Public Use
  Company Number: None

PATIENT
  Age: 48 Year
  Sex: Male
  Weight: 130.5 kg

DRUGS (1)
  1. AMLODIPINE BESYLATE [Suspect]
     Active Substance: AMLODIPINE BESYLATE
     Indication: Hypertension
     Dosage: FREQUENCY : DAILY;?
     Route: 048

REACTIONS (4)
  - Weight increased [None]
  - Fluid retention [None]
  - Loss of personal independence in daily activities [None]
  - Blood pressure increased [None]

NARRATIVE: CASE EVENT DATE: 20220207
